FAERS Safety Report 5644182-2 (Version None)
Quarter: 2008Q1

REPORT INFORMATION
  Report Type: 
  Country: None (occurrence: None)
  Receive Date: 20080227
  Receipt Date: 20080227
  Transmission Date: 20080703
  Serious: Yes (Death)
  Sender: FDA-Public Use
  Company Number: None

PATIENT
  Sex: Female
  Weight: 60.782 kg

DRUGS (1)
  1. FENTANYL [Suspect]
     Indication: PAIN
     Dosage: 75MG PATCH EVERY 72 HOURS
     Route: 062
     Dates: start: 20040217, end: 20061118

REACTIONS (1)
  - PHARMACEUTICAL PRODUCT COMPLAINT [None]
